FAERS Safety Report 9254765 (Version 1)
Quarter: 2013Q2

REPORT INFORMATION
  Report Type: Spontaneous
  Country: US (occurrence: None)
  Receive Date: 20130422
  Receipt Date: 20130422
  Transmission Date: 20140414
  Serious: Yes (Hospitalization)
  Sender: FDA-Public Use
  Company Number: None

PATIENT
  Age: 63 Year
  Sex: Male
  Weight: 73.5 kg

DRUGS (2)
  1. MIDAZOLAM [Suspect]
     Indication: SEDATION
     Dosage: 3 MG  ONCE  IV
     Route: 042
     Dates: start: 20130102, end: 20130102
  2. MEPERIDINE [Suspect]
     Indication: SEDATION
     Dosage: 75 MG  ONCE  IV
     Route: 042
     Dates: start: 20130102, end: 20130102

REACTIONS (9)
  - Syncope [None]
  - Post procedural complication [None]
  - Nausea [None]
  - Pallor [None]
  - Heart rate decreased [None]
  - Dehydration [None]
  - Dizziness [None]
  - Vomiting [None]
  - Orthostatic hypotension [None]
